FAERS Safety Report 17275455 (Version 2)
Quarter: 2020Q1

REPORT INFORMATION
  Report Type: Report from Study
  Country: CN (occurrence: CN)
  Receive Date: 20200116
  Receipt Date: 20200228
  Transmission Date: 20200409
  Serious: Yes (Other)
  Sender: FDA-Public Use
  Company Number: CN-ROCHE-2515625

PATIENT
  Age: 65 Year
  Sex: Male
  Weight: 82 kg

DRUGS (1)
  1. AVASTIN [Suspect]
     Active Substance: BEVACIZUMAB
     Indication: RECTAL CANCER
     Route: 041
     Dates: start: 20160928

REACTIONS (5)
  - Protein urine present [Unknown]
  - Blood albumin increased [Unknown]
  - Peripheral swelling [Unknown]
  - Renal impairment [Unknown]
  - Eye swelling [Unknown]
